FAERS Safety Report 9542816 (Version 2)
Quarter: 2013Q3

REPORT INFORMATION
  Report Type: Spontaneous
  Country: US (occurrence: US)
  Receive Date: 20130923
  Receipt Date: 20130927
  Transmission Date: 20140515
  Serious: No
  Sender: FDA-Public Use
  Company Number: US-PFIZER INC-2013269140

PATIENT
  Sex: Female

DRUGS (1)
  1. PREMARIN [Suspect]
     Dosage: 1 G, UNK
     Route: 067

REACTIONS (4)
  - Visual impairment [Unknown]
  - Feeling abnormal [Unknown]
  - Headache [Unknown]
  - Expired drug administered [Unknown]
